FAERS Safety Report 23109040 (Version 1)
Quarter: 2023Q4

REPORT INFORMATION
  Report Type: Spontaneous
  Country: CN (occurrence: CN)
  Receive Date: 20231026
  Receipt Date: 20231026
  Transmission Date: 20240110
  Serious: Yes (Other)
  Sender: FDA-Public Use
  Company Number: None

PATIENT
  Age: 22 Year
  Sex: Male
  Weight: 56 kg

DRUGS (1)
  1. LEVETIRACETAM [Suspect]
     Active Substance: LEVETIRACETAM
     Indication: Epilepsy
     Dosage: 0.25 GRAM ONCE DAILY (QD)
     Route: 048
     Dates: start: 20230628, end: 20231019

REACTIONS (4)
  - Hepatic function abnormal [Recovering/Resolving]
  - Dementia [Unknown]
  - Scar [Unknown]
  - Off label use [Unknown]

NARRATIVE: CASE EVENT DATE: 20230628
